FAERS Safety Report 7560182-X (Version None)
Quarter: 2011Q2

REPORT INFORMATION
  Report Type: 
  Country: None (occurrence: None)
  Receive Date: 20110621
  Receipt Date: 20110603
  Transmission Date: 20111010
  Serious: Yes (Hospitalization, Congenital Anomaly)
  Sender: FDA-Public Use
  Company Number: A0931922A

PATIENT
  Sex: Male

DRUGS (2)
  1. PAXIL [Suspect]
     Indication: DEPRESSION
     Route: 064
     Dates: start: 19940401, end: 19940901
  2. PRENATAL VITAMINS [Concomitant]
     Route: 064

REACTIONS (7)
  - CONGENITAL AORTIC ANOMALY [None]
  - PATENT DUCTUS ARTERIOSUS [None]
  - FALLOT'S TETRALOGY [None]
  - DRUG EXPOSURE DURING PREGNANCY [None]
  - PULMONARY ARTERY STENOSIS CONGENITAL [None]
  - CONGENITAL CARDIOVASCULAR ANOMALY [None]
  - PULMONARY VALVE INCOMPETENCE [None]
